FAERS Safety Report 5455368-4 (Version None)
Quarter: 2007Q3

REPORT INFORMATION
  Report Type: 
  Country: None (occurrence: None)
  Receive Date: 20070913
  Receipt Date: 20070913
  Transmission Date: 20080115
  Serious: No
  Sender: FDA-Public Use
  Company Number: None

PATIENT
  Age: 57 Year
  Sex: Female
  Weight: 84.8226 kg

DRUGS (1)
  1. LIPITOR [Suspect]
     Indication: BLOOD CHOLESTEROL INCREASED
     Dosage: 1 DAILY
     Dates: start: 20070801, end: 20070907

REACTIONS (5)
  - DIZZINESS [None]
  - MYALGIA [None]
  - NAUSEA [None]
  - NERVOUSNESS [None]
  - TREMOR [None]
